FAERS Safety Report 7118168-5 (Version None)
Quarter: 2010Q4

REPORT INFORMATION
  Report Type: 
  Country: None (occurrence: None)
  Receive Date: 20101123
  Receipt Date: 20101118
  Transmission Date: 20110411
  Serious: Yes (Hospitalization)
  Sender: FDA-Public Use
  Company Number: DE-BRISTOL-MYERS SQUIBB COMPANY-15395874

PATIENT
  Age: 69 Year
  Sex: Male

DRUGS (1)
  1. LITALIR CAPS [Suspect]
     Indication: POLYCYTHAEMIA VERA
     Dosage: 1 DF:ONE CAPSULE  AT TOTAL OF TWO RE-EXPOSITIONS.

REACTIONS (2)
  - CONFUSIONAL STATE [None]
  - PYREXIA [None]
